FAERS Safety Report 8119940-5 (Version None)
Quarter: 2012Q1

REPORT INFORMATION
  Report Type: 
  Country: None (occurrence: None)
  Receive Date: 20120207
  Receipt Date: 20120123
  Transmission Date: 20120608
  Serious: Yes (Other)
  Sender: FDA-Public Use
  Company Number: US-JUTA GMBH-2012-01859

PATIENT
  Age: 20 Year
  Sex: Male

DRUGS (3)
  1. RISPERIDONE [Suspect]
     Indication: PSYCHOPATHIC PERSONALITY
     Dosage: 0.25 MG, QAM
     Route: 065
  2. RISPERIDONE [Suspect]
     Dosage: 1 MG, QHS
     Route: 065
  3. GILENYA [Suspect]
     Indication: MULTIPLE SCLEROSIS

REACTIONS (6)
  - BRADYCARDIA [None]
  - MALAISE [None]
  - NAUSEA [None]
  - CARDIAC ARREST [None]
  - CONVULSION [None]
  - DRUG INTERACTION [None]
